FAERS Safety Report 4339810-8 (Version None)
Quarter: 2004Q2

REPORT INFORMATION
  Report Type: 
  Country: None (occurrence: None)
  Receive Date: 20040414
  Receipt Date: 20040414
  Transmission Date: 20050107
  Serious: Yes (Other)
  Sender: FDA-Public Use
  Company Number: None

PATIENT
  Age: 25 Year
  Sex: Female
  Weight: 117.028 kg

DRUGS (2)
  1. FOUR WAY FAST ACTING NASAL DECONGESTANT SPRAY [Suspect]
     Indication: ASTHMA
     Dosage: 2 SPRAY TWO TIMES A DAY
     Route: 045
  2. FOUR WAY FAST ACTING NASAL DECONGESTANT SPRAY [Suspect]
     Indication: NASAL CONGESTION
     Dosage: 2 SPRAY TWO TIMES A DAY
     Route: 045

REACTIONS (4)
  - ASTHMA [None]
  - CHRONIC SINUSITIS [None]
  - PHARMACEUTICAL PRODUCT COMPLAINT [None]
  - POSTNASAL DRIP [None]
